FAERS Safety Report 7550687-X (Version None)
Quarter: 2011Q2

REPORT INFORMATION
  Report Type: 
  Country: None (occurrence: None)
  Receive Date: 20110609
  Receipt Date: 20110524
  Transmission Date: 20111010
  Serious: Yes (Hospitalization, Other)
  Sender: FDA-Public Use
  Company Number: 2011MA006387

PATIENT
  Age: 2 Year
  Sex: Male

DRUGS (6)
  1. DIPHENHYDRAMINE HCL [Concomitant]
  2. MULTI-VITAMIN [Concomitant]
  3. IBUPROFEN [Concomitant]
  4. PHENOBARBITAL TAB [Suspect]
     Indication: CONVULSION
     Dosage: 60 MG; OD;
  5. LORATADINE [Concomitant]
  6. ACETAMINOPHEN [Concomitant]

REACTIONS (7)
  - HEPATITIS [None]
  - COAGULOPATHY [None]
  - CONDITION AGGRAVATED [None]
  - FEBRILE CONVULSION [None]
  - LUNG HYPERINFLATION [None]
  - DRUG RASH WITH EOSINOPHILIA AND SYSTEMIC SYMPTOMS [None]
  - DEPRESSED LEVEL OF CONSCIOUSNESS [None]
